FAERS Safety Report 14447134 (Version 3)
Quarter: 2018Q1

REPORT INFORMATION
  Report Type: Spontaneous
  Country: JP (occurrence: JP)
  Receive Date: 20180126
  Receipt Date: 20180315
  Transmission Date: 20180509
  Serious: Yes (Life-Threatening, Other)
  Sender: FDA-Public Use
  Company Number: JP-PFIZER INC-2018034574

PATIENT
  Age: 69 Year
  Sex: Male
  Weight: 48 kg

DRUGS (17)
  1. REBAMIPIDE [Concomitant]
     Active Substance: REBAMIPIDE
     Dosage: UNK
     Dates: start: 20171228, end: 20180110
  2. METHYCOBIDE [Concomitant]
     Active Substance: METHYLCOBALAMIN
     Dosage: UNK
     Dates: start: 20171228, end: 20180110
  3. AMLODIPINE [Concomitant]
     Active Substance: AMLODIPINE BESYLATE
     Dosage: UNK
     Dates: start: 20171228, end: 20180110
  4. MIYABM [Concomitant]
     Dosage: UNK
     Dates: start: 20171228, end: 20180110
  5. MAGMITT [Concomitant]
     Active Substance: MAGNESIUM OXIDE
     Dosage: UNK
     Dates: start: 20171228, end: 20180110
  6. CYRAMZA [Concomitant]
     Active Substance: RAMUCIRUMAB
     Indication: COLON CANCER
     Dosage: 384 MG/BODY, UNK
     Route: 041
     Dates: start: 20180109, end: 20180109
  7. ALOXI [Concomitant]
     Active Substance: PALONOSETRON HYDROCHLORIDE
     Dosage: UNK
     Dates: start: 20180109, end: 20180109
  8. PRIMPERAN [Concomitant]
     Active Substance: METOCLOPRAMIDE HYDROCHLORIDE
     Dosage: UNK
     Dates: start: 20171228, end: 20180110
  9. FAMOTIDINE. [Concomitant]
     Active Substance: FAMOTIDINE
     Dosage: UNK
     Dates: start: 20171228, end: 20180110
  10. LEVOFOLINATE YAKULT [Suspect]
     Active Substance: LEVOLEUCOVORIN CALCIUM
     Indication: COLON CANCER
     Dosage: 275 MG/BODY (181.5 MG/M2), CYCLIC (D1-2)
     Route: 041
     Dates: start: 20180109, end: 20180109
  11. GASTER [Concomitant]
     Active Substance: FAMOTIDINE
     Dosage: UNK
     Dates: start: 20180109, end: 20180109
  12. DECADRON /00016002/ [Concomitant]
     Active Substance: DEXAMETHASONE
     Dosage: UNK
     Dates: start: 20180109, end: 20180109
  13. CANDESARTAN. [Concomitant]
     Active Substance: CANDESARTAN
     Dosage: UNK
     Dates: start: 20171228, end: 20180110
  14. 5-FU /00098801/ [Suspect]
     Active Substance: FLUOROURACIL
     Indication: COLON CANCER
     Dosage: 500 MG/BODY (330 MG/M2), CYCLIC (D1-2)
     Route: 040
     Dates: start: 20180109, end: 20180109
  15. POLARAMINE [Concomitant]
     Active Substance: DEXCHLORPHENIRAMINE MALEATE
     Dosage: UNK
     Dates: start: 20180109, end: 20180109
  16. CAMPTO [Suspect]
     Active Substance: IRINOTECAN
     Indication: COLON CANCER
     Dosage: 120 MG/BODY (79.2 MG/M2), CYCLIC (D1-2)
     Route: 041
     Dates: start: 20180109, end: 20180109
  17. 5-FU /00098801/ [Suspect]
     Active Substance: FLUOROURACIL
     Dosage: 1700 MG/BODY CYCLIC (1122.1 MG/M2,D1-2)
     Route: 041
     Dates: start: 20180109, end: 20180109

REACTIONS (5)
  - Hyperammonaemia [Recovered/Resolved]
  - Neutropenia [Recovered/Resolved]
  - Abdominal pain [Recovered/Resolved]
  - Altered state of consciousness [Recovered/Resolved]
  - Hyperbilirubinaemia [Recovered/Resolved]

NARRATIVE: CASE EVENT DATE: 20180111
